FAERS Safety Report 22289464 (Version 1)
Quarter: 2023Q2

REPORT INFORMATION
  Report Type: Spontaneous
  Country: US (occurrence: None)
  Receive Date: 20230504
  Receipt Date: 20230504
  Transmission Date: 20230722
  Serious: Yes (Death, Hospitalization)
  Sender: FDA-Public Use
  Company Number: None

PATIENT
  Age: 62 Year
  Sex: Female
  Weight: 79.5 kg

DRUGS (1)
  1. MONOFERRIC [Suspect]
     Active Substance: FERRIC DERISOMALTOSE
     Indication: Iron deficiency anaemia
     Dosage: OTHER FREQUENCY : ONCE;?
     Route: 042
     Dates: start: 20230407, end: 20230407

REACTIONS (6)
  - Cardiac arrest [None]
  - Diastolic dysfunction [None]
  - Brain oedema [None]
  - Brain herniation [None]
  - Hypoxic-ischaemic encephalopathy [None]
  - Brain death [None]

NARRATIVE: CASE EVENT DATE: 20230407
